FAERS Safety Report 5168966-2 (Version None)
Quarter: 2006Q4

REPORT INFORMATION
  Report Type: 
  Country: None (occurrence: None)
  Receive Date: 20061211
  Receipt Date: 20061204
  Transmission Date: 20070319
  Serious: Yes (Hospitalization)
  Sender: FDA-Public Use
  Company Number: IL-GLAXOSMITHKLINE-B0449709A

PATIENT
  Age: 10 Year
  Sex: Female

DRUGS (5)
  1. LAMOTRIGINE [Suspect]
     Route: 065
  2. METHYLPHENIDATE HCL [Concomitant]
     Route: 065
  3. CLONAZEPAM [Concomitant]
     Dosage: 1MG PER DAY
     Route: 048
  4. SULTHIAMINE [Concomitant]
     Route: 065
  5. RISPERIDONE [Concomitant]
     Indication: OBSESSIVE-COMPULSIVE DISORDER
     Route: 065

REACTIONS (8)
  - CONFUSIONAL STATE [None]
  - DEHYDRATION [None]
  - DISORIENTATION [None]
  - HEADACHE [None]
  - MENINGISM [None]
  - PETIT MAL EPILEPSY [None]
  - STARING [None]
  - VOMITING [None]
